FAERS Safety Report 24549901 (Version 2)
Quarter: 2024Q4

REPORT INFORMATION
  Report Type: Spontaneous
  Country: US (occurrence: US)
  Receive Date: 20241025
  Receipt Date: 20241203
  Transmission Date: 20250114
  Serious: No
  Sender: LUPIN
  Company Number: US-LUPIN PHARMACEUTICALS INC.-2024-10228

PATIENT

DRUGS (1)
  1. TESTOSTERONE GEL 1.62% [Suspect]
     Active Substance: TESTOSTERONE
     Indication: Product used for unknown indication
     Dosage: UNK ONE PUMP PER ARM PER DAY
     Route: 065
     Dates: start: 20241001

REACTIONS (3)
  - Drug ineffective [Unknown]
  - Product dispensing error [Unknown]
  - Product odour abnormal [Unknown]
